FAERS Safety Report 7511187-6 (Version None)
Quarter: 2011Q2

REPORT INFORMATION
  Report Type: 
  Country: None (occurrence: None)
  Receive Date: 20110531
  Receipt Date: 20110523
  Transmission Date: 20111010
  Serious: Yes (Other)
  Sender: FDA-Public Use
  Company Number: PHHY2010BR72595

PATIENT
  Sex: Female

DRUGS (1)
  1. FORMOTEROL FUMARATE [Suspect]

REACTIONS (5)
  - OESOPHAGITIS [None]
  - DYSPEPSIA [None]
  - OROPHARYNGEAL PAIN [None]
  - THROAT TIGHTNESS [None]
  - GASTRITIS [None]
